FAERS Safety Report 5795837-0 (Version None)
Quarter: 2008Q3

REPORT INFORMATION
  Report Type: 
  Country: None (occurrence: None)
  Receive Date: 20080701
  Receipt Date: 20080617
  Transmission Date: 20090109
  Serious: Yes (Hospitalization, Other)
  Sender: FDA-Public Use
  Company Number: US-BAYER-200812494BCC

PATIENT
  Age: 80 Year
  Sex: Female
  Weight: 47 kg

DRUGS (9)
  1. ASPIRIN [Suspect]
     Indication: DRUG USE FOR UNKNOWN INDICATION
     Route: 048
  2. ASPIRIN [Suspect]
     Indication: DRUG USE FOR UNKNOWN INDICATION
     Route: 048
  3. FUROSEMIDE [Concomitant]
  4. XANAX [Concomitant]
  5. LISINOPRIL [Concomitant]
  6. ANTIDEPRESSANT [Concomitant]
  7. DIGOXIN [Concomitant]
  8. ARICEPT [Concomitant]
  9. FUROSEMIDE [Concomitant]

REACTIONS (4)
  - CORONARY ARTERY OCCLUSION [None]
  - FAECES DISCOLOURED [None]
  - HAEMORRHAGE [None]
  - RECTAL HAEMORRHAGE [None]
